FAERS Safety Report 16076578 (Version 1)
Quarter: 2019Q2

REPORT INFORMATION
  Report Type: Spontaneous
  Country: US (occurrence: US)
  Receive Date: 20190314
  Receipt Date: 20190314
  Transmission Date: 20190711
  Serious: Yes (Death, Life-Threatening, Disabling)
  Sender: FDA-Public Use
  Company Number: None

PATIENT
  Age: 48 Year
  Sex: Female
  Weight: 77.4 kg

DRUGS (10)
  1. HARVONI [Suspect]
     Active Substance: LEDIPASVIR\SOFOSBUVIR
     Indication: HEPATITIS C
     Route: 048
     Dates: start: 20170223
  2. ALEVE [Concomitant]
     Active Substance: NAPROXEN SODIUM
  3. BLOOD PRESSURE MEDICINE [Concomitant]
     Active Substance: UNSPECIFIED INGREDIENT
  4. METHADONE [Concomitant]
     Active Substance: METHADONE HYDROCHLORIDE
  5. DIAZEPAM. [Concomitant]
     Active Substance: DIAZEPAM
  6. CHOLESTEROL MEDICATION [Concomitant]
     Active Substance: UNSPECIFIED INGREDIENT
  7. ASPIRIN. [Concomitant]
     Active Substance: ASPIRIN
  8. XANAX [Concomitant]
     Active Substance: ALPRAZOLAM
  9. OMEPRAZOL [Concomitant]
     Active Substance: OMEPRAZOLE
  10. DIETETIC MEDICATION [Concomitant]

REACTIONS (3)
  - Food craving [None]
  - Hypophagia [None]
  - Myocardial infarction [None]

NARRATIVE: CASE EVENT DATE: 20180727
